FAERS Safety Report 15192044 (Version 1)
Quarter: 2018Q3

REPORT INFORMATION
  Report Type: Spontaneous
  Country: US (occurrence: US)
  Receive Date: 20180724
  Receipt Date: 20180724
  Transmission Date: 20181010
  Serious: Yes (Other)
  Sender: FDA-Public Use
  Company Number: US-ANIPHARMA-2018-US-010542

PATIENT
  Age: 78 Year
  Sex: Male

DRUGS (1)
  1. NILUTAMIDE TABLETS [Suspect]
     Active Substance: NILUTAMIDE
     Indication: PROSTATE CANCER
     Dosage: 150 MG DAILY
     Route: 048
     Dates: start: 20180512, end: 20180615

REACTIONS (4)
  - Dyspnoea [Unknown]
  - Chest discomfort [Unknown]
  - Peripheral swelling [Unknown]
  - Dizziness [Unknown]
